FAERS Safety Report 24081566 (Version 2)
Quarter: 2025Q3

REPORT INFORMATION
  Report Type: Spontaneous
  Country: US (occurrence: US)
  Receive Date: 20240712
  Receipt Date: 20250710
  Transmission Date: 20251020
  Serious: No
  Sender: PRINSTON PHARMACEUTICAL
  Company Number: US-PRINSTON PHARMACEUTICAL INC.-2024PRN00092

PATIENT
  Sex: Female

DRUGS (6)
  1. HYDROXYZINE HYDROCHLORIDE [Suspect]
     Active Substance: HYDROXYZINE HYDROCHLORIDE
  2. OXBRYTA [Suspect]
     Active Substance: VOXELOTOR
     Dosage: 3 TABLETS (1500 MG), 1X/DAY
     Route: 048
     Dates: start: 20230629
  3. OXBRYTA [Suspect]
     Active Substance: VOXELOTOR
     Dosage: 1 TABLET 2X/DAY (ONE IN THE MORNING, ONE AT NOON)
  4. HYDROXYUREA [Suspect]
     Active Substance: HYDROXYUREA
  5. FOLIC ACID [Suspect]
     Active Substance: FOLIC ACID
  6. UNSPECIFIED INGREDIENT [Suspect]
     Active Substance: UNSPECIFIED INGREDIENT

REACTIONS (3)
  - Abdominal discomfort [Unknown]
  - Vomiting [Unknown]
  - Nausea [Unknown]
